FAERS Safety Report 7898133 (Version 38)
Quarter: 2017Q1

REPORT INFORMATION
  Report Type: Report from Study
  Country: CA (occurrence: CA)
  Receive Date: 20110413
  Receipt Date: 20170310
  Transmission Date: 20170429
  Serious: Yes (Hospitalization, Other)
  Sender: FDA-Public Use
  Company Number: PHHY2011CA28394

PATIENT
  Age: 67 Year
  Sex: Female

DRUGS (15)
  1. SANDOSTATIN LAR DEPOT [Suspect]
     Active Substance: OCTREOTIDE ACETATE
     Dosage: 30 MG, QMO (EVERY 4 WEEKS)
     Route: 030
  2. SANDOSTATIN LAR DEPOT [Suspect]
     Active Substance: OCTREOTIDE ACETATE
     Dosage: 30 MG, ONCE EVERY 6 WEEKS
     Route: 030
  3. ASAPHEN [Concomitant]
     Active Substance: ASPIRIN
     Indication: PRODUCT USED FOR UNKNOWN INDICATION
     Dosage: 81 MG, QOD (EVERY 2ND DAY)
     Route: 065
  4. EFFIENT [Concomitant]
     Active Substance: PRASUGREL HYDROCHLORIDE
     Indication: PRODUCT USED FOR UNKNOWN INDICATION
     Dosage: UNK
     Route: 065
  5. SANDOSTATIN LAR DEPOT [Suspect]
     Active Substance: OCTREOTIDE ACETATE
     Dosage: 30 MG, QMO (EVERY 4 WEEKS)
     Route: 030
  6. BIAXIN [Suspect]
     Active Substance: CLARITHROMYCIN
     Indication: SINUSITIS
     Dosage: 500 MG, BID
     Route: 065
  7. HYDRAZIDE [Concomitant]
     Active Substance: HYDROCHLOROTHIAZIDE
     Indication: PRODUCT USED FOR UNKNOWN INDICATION
     Dosage: 25 MG, QD
     Route: 065
  8. SYNTHROID [Concomitant]
     Active Substance: LEVOTHYROXINE SODIUM
     Dosage: 1.75 MG, QD
     Route: 065
  9. SANDOSTATIN LAR DEPOT [Suspect]
     Active Substance: OCTREOTIDE ACETATE
     Indication: CARCINOID SYNDROME
     Dosage: 30 MG, QMO
     Route: 030
     Dates: start: 20070530
  10. SANDOSTATIN LAR DEPOT [Suspect]
     Active Substance: OCTREOTIDE ACETATE
     Dosage: 40 MG, QMO
     Route: 030
  11. AFINITOR [Suspect]
     Active Substance: EVEROLIMUS
     Indication: NEUROENDOCRINE TUMOUR
     Dosage: 10 MG, QD
     Route: 048
     Dates: start: 2016, end: 20170227
  12. SYNTHROID [Concomitant]
     Active Substance: LEVOTHYROXINE SODIUM
     Indication: PRODUCT USED FOR UNKNOWN INDICATION
     Dosage: 1.75 MG, QD
     Route: 065
  13. NORVASC [Concomitant]
     Active Substance: AMLODIPINE BESYLATE
     Indication: PRODUCT USED FOR UNKNOWN INDICATION
     Dosage: UNK
     Route: 065
  14. ZOCOR [Concomitant]
     Active Substance: SIMVASTATIN
     Indication: PRODUCT USED FOR UNKNOWN INDICATION
     Dosage: 40 MG, QD
     Route: 065
  15. SANDOSTATIN LAR DEPOT [Suspect]
     Active Substance: OCTREOTIDE ACETATE
     Dosage: 40 MG, QMO (EVERY 4 WEEKS)
     Route: 030
     Dates: start: 20160812

REACTIONS (60)
  - Asthenia [Unknown]
  - Cardiac disorder [Unknown]
  - Peripheral swelling [Unknown]
  - Blood pressure difference of extremities [Unknown]
  - Musculoskeletal pain [Recovering/Resolving]
  - Erythema [Unknown]
  - Thyroid function test abnormal [Unknown]
  - Weight decreased [Unknown]
  - Weight increased [Unknown]
  - Injection site mass [Unknown]
  - Constipation [Unknown]
  - Neuritis [Recovering/Resolving]
  - Fall [Unknown]
  - Limb discomfort [Unknown]
  - Skin discolouration [Recovering/Resolving]
  - Urinary incontinence [Unknown]
  - Intestinal obstruction [Unknown]
  - Burning sensation [Unknown]
  - Depressed mood [Unknown]
  - Injection site swelling [Unknown]
  - Injection site pain [Unknown]
  - Joint swelling [Unknown]
  - Chest pain [Recovering/Resolving]
  - Fungal infection [Unknown]
  - Urinary tract infection [Unknown]
  - Sinusitis [Unknown]
  - Abdominal pain [Unknown]
  - Injection site hypoaesthesia [Unknown]
  - Inappropriate schedule of drug administration [Unknown]
  - Ear pain [Recovering/Resolving]
  - Eye infection [Unknown]
  - Hypertension [Unknown]
  - Cellulitis [Unknown]
  - Balance disorder [Unknown]
  - Renal pain [Unknown]
  - Chills [Unknown]
  - Oropharyngeal pain [Recovering/Resolving]
  - Hot flush [Unknown]
  - Headache [Unknown]
  - Subileus [Recovering/Resolving]
  - Volvulus [Unknown]
  - Influenza [Unknown]
  - Vomiting [Unknown]
  - Dizziness [Unknown]
  - Angina pectoris [Unknown]
  - Blood pressure systolic increased [Unknown]
  - Malignant neoplasm progression [Unknown]
  - Arthralgia [Unknown]
  - Pain in extremity [Unknown]
  - Scratch [Not Recovered/Not Resolved]
  - Body temperature decreased [Unknown]
  - Needle issue [Unknown]
  - Fatigue [Not Recovered/Not Resolved]
  - Diarrhoea [Recovering/Resolving]
  - Recurrent cancer [Unknown]
  - Nausea [Unknown]
  - Malaise [Unknown]
  - Epistaxis [Recovered/Resolved]
  - Arthritis [Recovering/Resolving]
  - Rash pruritic [Unknown]

NARRATIVE: CASE EVENT DATE: 20110318
